FAERS Safety Report 19381656 (Version 5)
Quarter: 2021Q3

REPORT INFORMATION
  Report Type: Report from Study
  Country: None (occurrence: BE)
  Receive Date: 20210607
  Receipt Date: 20210921
  Transmission Date: 20211014
  Serious: Yes (Other)
  Sender: FDA-Public Use
  Company Number: BE-ABBVIE-21K-013-3933932-00

PATIENT
  Sex: Male
  Weight: 75 kg

DRUGS (5)
  1. DUODOPA [Suspect]
     Active Substance: CARBIDOPA\LEVODOPA
     Dosage: MD 5.5 ML; CD 3.1ML/H; ED 1.7 ML; DURING 16HRS
     Route: 050
     Dates: start: 20210602, end: 20210809
  2. DUODOPA [Suspect]
     Active Substance: CARBIDOPA\LEVODOPA
     Indication: PARKINSON^S DISEASE
     Route: 050
     Dates: start: 20180313
  3. DUODOPA [Suspect]
     Active Substance: CARBIDOPA\LEVODOPA
     Dosage: MD 5.5 ML; CD 3.1ML/H; ED 1.7 ML
     Route: 050
     Dates: start: 20201208
  4. DUODOPA [Suspect]
     Active Substance: CARBIDOPA\LEVODOPA
     Dosage: MD 5.5 ML; CD 3.1ML/H; ED 2.2 ML; DURING 16HRS
     Route: 050
     Dates: start: 20210830
  5. DUODOPA [Suspect]
     Active Substance: CARBIDOPA\LEVODOPA
     Dosage: ED 2.0 ML; DURING 16HRS
     Route: 050
     Dates: start: 20210809, end: 20210830

REACTIONS (4)
  - Intestinal haemorrhage [Recovered/Resolved]
  - Dyskinesia [Unknown]
  - Gastrostomy [Unknown]
  - Therapeutic product effect incomplete [Unknown]
